FAERS Safety Report 20258733 (Version 1)
Quarter: 2021Q4

REPORT INFORMATION
  Report Type: Other
  Country: US (occurrence: US)
  Receive Date: 20211230
  Receipt Date: 20211230
  Transmission Date: 20220303
  Serious: No
  Sender: FDA-Public Use
  Company Number: US-SLATE RUN PHARMACEUTICALS-21US000758

PATIENT

DRUGS (2)
  1. BUPROPION HYDROCHLORIDE [Suspect]
     Active Substance: BUPROPION HYDROCHLORIDE
     Indication: Product used for unknown indication
     Dosage: UNK
  2. WELLBUTRIN [Concomitant]
     Active Substance: BUPROPION HYDROCHLORIDE
     Indication: Product used for unknown indication

REACTIONS (13)
  - Chest discomfort [Unknown]
  - Skin irritation [Unknown]
  - Acne [Unknown]
  - Pain in jaw [Unknown]
  - Abdominal distension [Unknown]
  - Product substitution issue [Unknown]
  - Flatulence [Unknown]
  - Arthralgia [Unknown]
  - Nausea [Unknown]
  - Irritability [Unknown]
  - Mood altered [Unknown]
  - Aggression [Unknown]
  - Sleep disorder [Unknown]
